FAERS Safety Report 19219813 (Version 1)
Quarter: 2021Q2

REPORT INFORMATION
  Report Type: Other
  Country: GR (occurrence: GR)
  Receive Date: 20210505
  Receipt Date: 20210505
  Transmission Date: 20210717
  Serious: Yes (Other)
  Sender: FDA-Public Use
  Company Number: GR-ROCHE-2819885

PATIENT

DRUGS (6)
  1. PEMBROLIZUMAB. [Suspect]
     Active Substance: PEMBROLIZUMAB
     Indication: NEOPLASM MALIGNANT
     Route: 065
  2. ATEZOLIZUMAB. [Suspect]
     Active Substance: ATEZOLIZUMAB
     Indication: NEOPLASM MALIGNANT
     Route: 065
  3. NIVOLUMAB [Suspect]
     Active Substance: NIVOLUMAB
     Indication: NEOPLASM MALIGNANT
     Route: 065
  4. DURVALUMAB. [Suspect]
     Active Substance: DURVALUMAB
     Indication: NEOPLASM MALIGNANT
     Route: 065
  5. SPARTALIZUMAB [Suspect]
     Active Substance: SPARTALIZUMAB
     Indication: NEOPLASM MALIGNANT
     Route: 065
  6. AVELUMAB [Suspect]
     Active Substance: AVELUMAB
     Indication: NEOPLASM MALIGNANT
     Route: 065

REACTIONS (8)
  - Erythrodermic psoriasis [Unknown]
  - Nail psoriasis [Unknown]
  - Pustular psoriasis [Unknown]
  - Vitiligo [Unknown]
  - Psoriasis [Unknown]
  - Rash macular [Unknown]
  - Guttate psoriasis [Unknown]
  - Lichen planus [Unknown]
